FAERS Safety Report 8357579-7 (Version None)
Quarter: 2012Q2

REPORT INFORMATION
  Report Type: 
  Country: None (occurrence: None)
  Receive Date: 20120514
  Receipt Date: 20120507
  Transmission Date: 20120825
  Serious: Yes (Other)
  Sender: FDA-Public Use
  Company Number: US-ABBOTT-12P-163-0932825-00

PATIENT
  Sex: Female
  Weight: 70.37 kg

DRUGS (4)
  1. VALTREX [Concomitant]
     Indication: LEUKAEMIA
  2. LEVOTHYROXINE SODIUM [Concomitant]
     Indication: HYPOTHYROIDISM
  3. PLATELETS [Concomitant]
     Indication: LEUKAEMIA
  4. GENGRAF [Suspect]
     Indication: PRODUCT USED FOR UNKNOWN INDICATION
     Dates: start: 20070101

REACTIONS (2)
  - NEUROPATHY PERIPHERAL [None]
  - HYPERTENSION [None]
